FAERS Safety Report 14164993 (Version 1)
Quarter: 2017Q4

REPORT INFORMATION
  Report Type: Other
  Country: IN (occurrence: IN)
  Receive Date: 20171107
  Receipt Date: 20171107
  Transmission Date: 20180321
  Serious: Yes (Other)
  Sender: FDA-Public Use
  Company Number: IN-KNIGHT THERAPEUTICS (USA) INC.-2033391

PATIENT
  Age: 30 Year
  Sex: Male

DRUGS (1)
  1. IMPAVIDO [Suspect]
     Active Substance: MILTEFOSINE
     Indication: VISCERAL LEISHMANIASIS
     Route: 048

REACTIONS (1)
  - Keratitis [Recovered/Resolved]
